FAERS Safety Report 24326194 (Version 1)
Quarter: 2024Q3

REPORT INFORMATION
  Report Type: Other
  Country: IT (occurrence: IT)
  Receive Date: 20240917
  Receipt Date: 20240917
  Transmission Date: 20241017
  Serious: Yes (Death)
  Sender: BIONPHARMA
  Company Number: IT-Bion-013855

PATIENT
  Sex: Female

DRUGS (5)
  1. TETRABENAZINE [Suspect]
     Active Substance: TETRABENAZINE
     Indication: Dystonia
  2. BACLOFEN [Concomitant]
     Active Substance: BACLOFEN
     Indication: Dystonia
  3. GABAPENTIN [Concomitant]
     Active Substance: GABAPENTIN
     Indication: Dystonia
  4. LORAZEPAM [Concomitant]
     Active Substance: LORAZEPAM
     Indication: Dystonia
  5. BOTULINUM TOXIN NOS [Concomitant]
     Active Substance: BOTULINUM TOXIN NOS
     Indication: Dystonia

REACTIONS (1)
  - Treatment failure [Fatal]
